FAERS Safety Report 6083069-0 (Version None)
Quarter: 2009Q1

REPORT INFORMATION
  Report Type: 
  Country: None (occurrence: None)
  Receive Date: 20090218
  Receipt Date: 20090209
  Transmission Date: 20090719
  Serious: Yes (Hospitalization)
  Sender: FDA-Public Use
  Company Number: US-AMGEN-QUU332968

PATIENT
  Sex: Female

DRUGS (1)
  1. ENBREL [Suspect]
     Indication: ANKYLOSING SPONDYLITIS
     Route: 058
     Dates: start: 20090107

REACTIONS (6)
  - DEHYDRATION [None]
  - DIZZINESS [None]
  - HEADACHE [None]
  - INFLUENZA [None]
  - NAUSEA [None]
  - PRODUCTIVE COUGH [None]
